FAERS Safety Report 5153139-X (Version None)
Quarter: 2006Q4

REPORT INFORMATION
  Report Type: 
  Country: None (occurrence: None)
  Receive Date: 20061117
  Receipt Date: 20061110
  Transmission Date: 20070319
  Serious: Yes (Hospitalization)
  Sender: FDA-Public Use
  Company Number: FR-GLAXOSMITHKLINE-B0446504A

PATIENT
  Age: 22 Year
  Sex: Female

DRUGS (1)
  1. SALBUMOL [Suspect]
     Indication: PREMATURE LABOUR
     Dosage: 1.5MGH PER DAY
     Route: 042
     Dates: start: 20061022, end: 20061022

REACTIONS (6)
  - CHEST PAIN [None]
  - DRUG EXPOSURE DURING PREGNANCY [None]
  - HYPOTENSION [None]
  - MUSCLE SPASMS [None]
  - SINUS TACHYCARDIA [None]
  - TREMOR [None]
